APPROVED DRUG PRODUCT: CEFEPIME HYDROCHLORIDE
Active Ingredient: CEFEPIME HYDROCHLORIDE
Strength: EQ 1GM BASE/VIAL
Dosage Form/Route: INJECTABLE;INJECTION
Application: A214402 | Product #001 | TE Code: AP
Applicant: HIKMA PHARMACEUTICALS USA INC
Approved: May 22, 2024 | RLD: No | RS: No | Type: RX